FAERS Safety Report 6305538-8 (Version None)
Quarter: 2009Q3

REPORT INFORMATION
  Report Type: 
  Country: None (occurrence: None)
  Receive Date: 20090807
  Receipt Date: 20090730
  Transmission Date: 20100115
  Serious: Yes (Hospitalization)
  Sender: FDA-Public Use
  Company Number: 2009SP013044

PATIENT
  Age: 60 Year
  Sex: Female
  Weight: 42 kg

DRUGS (5)
  1. PEG-INTRON [Suspect]
     Indication: HEPATITIS C
     Dosage: 80 MCG; QW; SC, 80 MCG; QW; SC
     Route: 058
     Dates: start: 20090206, end: 20090604
  2. PEG-INTRON [Suspect]
     Indication: HEPATITIS C
     Dosage: 80 MCG; QW; SC, 80 MCG; QW; SC
     Route: 058
     Dates: start: 20090702
  3. REBETOL [Suspect]
     Indication: HEPATITIS C
     Dosage: 600 MG; QD; PO, 400 MG; QD; PO, 400 MG; QD; PO
     Route: 048
     Dates: start: 20090206, end: 20090311
  4. REBETOL [Suspect]
     Indication: HEPATITIS C
     Dosage: 600 MG; QD; PO, 400 MG; QD; PO, 400 MG; QD; PO
     Route: 048
     Dates: start: 20090312, end: 20090604
  5. REBETOL [Suspect]
     Indication: HEPATITIS C
     Dosage: 600 MG; QD; PO, 400 MG; QD; PO, 400 MG; QD; PO
     Route: 048
     Dates: start: 20090702

REACTIONS (2)
  - HAEMORRHOIDAL HAEMORRHAGE [None]
  - MELAENA [None]
